FAERS Safety Report 6443235-9 (Version None)
Quarter: 2009Q4

REPORT INFORMATION
  Report Type: 
  Country: None (occurrence: None)
  Receive Date: 20091117
  Receipt Date: 20091110
  Transmission Date: 20100525
  Serious: Yes (Other)
  Sender: FDA-Public Use
  Company Number: GB-GENENTECH-291177

PATIENT
  Sex: Female

DRUGS (5)
  1. HERCEPTIN [Suspect]
     Indication: BREAST CANCER METASTATIC
     Dosage: 6 MG/KG, Q3W
     Route: 042
     Dates: start: 20080101
  2. XELODA [Suspect]
     Indication: BREAST CANCER METASTATIC
     Dosage: 1250 MG/M2, UNK
     Route: 048
     Dates: start: 20090501, end: 20090901
  3. IBANDRONATE [Suspect]
     Indication: METASTASES TO BONE
     Dosage: 50 MG, UNK
     Route: 048
     Dates: start: 20081101
  4. GABAPENTIN [Concomitant]
     Indication: BONE PAIN
     Dosage: UNK
     Dates: start: 20081201
  5. OXYCODONE HCL [Concomitant]
     Indication: BONE PAIN
     Dosage: UNK
     Dates: start: 20081001

REACTIONS (2)
  - GASTRIC ULCER [None]
  - OESOPHAGEAL ULCER [None]
